FAERS Safety Report 15193372 (Version 1)
Quarter: 2018Q3

REPORT INFORMATION
  Report Type: Spontaneous
  Country: US (occurrence: US)
  Receive Date: 20180626
  Receipt Date: 20180626
  Transmission Date: 20181010
  Serious: Yes (Hospitalization)
  Sender: FDA-Public Use
  Company Number: None

PATIENT
  Sex: Male
  Weight: 140.5 kg

DRUGS (3)
  1. LENALIDOMIDE (CC?5013) [Suspect]
     Active Substance: LENALIDOMIDE
     Dates: end: 20180617
  2. VELCADE [Suspect]
     Active Substance: BORTEZOMIB
     Dates: start: 20180614
  3. DEXAMETHASONE. [Suspect]
     Active Substance: DEXAMETHASONE
     Dates: end: 20180615

REACTIONS (5)
  - Oedema [None]
  - Lung infection [None]
  - Pulmonary oedema [None]
  - Therapy non-responder [None]
  - Generalised oedema [None]

NARRATIVE: CASE EVENT DATE: 20180622
